FAERS Safety Report 10239509 (Version 1)
Quarter: 2014Q2

REPORT INFORMATION
  Report Type: Spontaneous
  Country: CA (occurrence: CA)
  Receive Date: 20140616
  Receipt Date: 20140616
  Transmission Date: 20141212
  Serious: Yes (Other)
  Sender: FDA-Public Use
  Company Number: CA-TEVA-487770USA

PATIENT
  Age: 56 Year
  Sex: Male

DRUGS (3)
  1. CAPECITABINE [Suspect]
     Indication: ADENOCARCINOMA OF COLON
     Dosage: DAYS 1 THROUGH 14 EVERY 21 DAYS FOR 8 CYCLES
     Route: 048
  2. PROPRANOLOL [Concomitant]
     Indication: HYPERTENSION
     Route: 065
  3. ATORVASTATIN [Concomitant]
     Indication: HYPERLIPIDAEMIA
     Route: 065

REACTIONS (1)
  - Gouty arthritis [Recovered/Resolved]
